FAERS Safety Report 19662635 (Version 1)
Quarter: 2021Q3

REPORT INFORMATION
  Report Type: Spontaneous
  Country: BR (occurrence: BR)
  Receive Date: 20210806
  Receipt Date: 20210806
  Transmission Date: 20211014
  Serious: Yes (Congenital Anomaly)
  Sender: FDA-Public Use
  Company Number: BR-ABBVIE-21K-020-4020235-00

PATIENT
  Sex: Male
  Weight: 2.98 kg

DRUGS (1)
  1. HUMIRA [Suspect]
     Active Substance: ADALIMUMAB
     Indication: MATERNAL EXPOSURE TIMING UNSPECIFIED
     Route: 064

REACTIONS (4)
  - Polycythaemia [Unknown]
  - Ear malformation [Unknown]
  - General physical health deterioration [Unknown]
  - Microtia [Unknown]

NARRATIVE: CASE EVENT DATE: 2021
